FAERS Safety Report 9331179 (Version 1)
Quarter: 2013Q2

REPORT INFORMATION
  Report Type: Spontaneous
  Country: SE (occurrence: SE)
  Receive Date: 20130605
  Receipt Date: 20130605
  Transmission Date: 20140414
  Serious: Yes (Life-Threatening)
  Sender: FDA-Public Use
  Company Number: PHHY2013SE056598

PATIENT
  Age: 64 Year
  Sex: Female

DRUGS (4)
  1. ENALAPRIL+HYDROCHLOROTHIAZIDE [Suspect]
     Dates: start: 201201, end: 20130325
  2. METOPROLOL RETARD GEA [Suspect]
     Dosage: 50 MG, UNK
     Dates: start: 201201, end: 20130325
  3. OMEPRAZOLPENSA [Concomitant]
     Dosage: 20 MG, UNK
  4. TROMBYL [Concomitant]
     Dosage: 75 MG, UNK

REACTIONS (10)
  - Lip dry [Recovered/Resolved with Sequelae]
  - Wheezing [Recovered/Resolved with Sequelae]
  - Cheilitis [Recovered/Resolved with Sequelae]
  - Pharyngitis [Recovered/Resolved with Sequelae]
  - Oropharyngeal pain [Recovered/Resolved with Sequelae]
  - Malaise [Recovered/Resolved with Sequelae]
  - Pyrexia [Recovered/Resolved with Sequelae]
  - Alopecia [Recovered/Resolved with Sequelae]
  - White blood cell count decreased [Recovered/Resolved with Sequelae]
  - Decreased activity [None]
